FAERS Safety Report 5953063-6 (Version None)
Quarter: 2008Q4

REPORT INFORMATION
  Report Type: 
  Country: None (occurrence: None)
  Receive Date: 20081114
  Receipt Date: 20081106
  Transmission Date: 20090506
  Serious: Yes (Life-Threatening, Hospitalization)
  Sender: FDA-Public Use
  Company Number: GB-JNJFOC-20081005032

PATIENT
  Age: 53 Year
  Sex: Male
  Weight: 93.4 kg

DRUGS (8)
  1. REMICADE [Suspect]
     Indication: RHEUMATOID ARTHRITIS
     Route: 042
  2. HUMIRA [Suspect]
     Indication: RHEUMATOID ARTHRITIS
     Route: 058
  3. ANTIHYPERTENSIVE [Concomitant]
     Indication: HYPERTENSION
  4. METHOTREXATE [Concomitant]
     Indication: RHEUMATOID ARTHRITIS
     Route: 048
  5. ASPIRIN [Concomitant]
  6. FOLIC ACID [Concomitant]
     Route: 048
  7. MEBEVERINE [Concomitant]
  8. OMEPRAZOLE [Concomitant]

REACTIONS (1)
  - BLADDER CANCER STAGE II [None]
